FAERS Safety Report 9841797 (Version 2)
Quarter: 2014Q1

REPORT INFORMATION
  Report Type: Spontaneous
  Country: US (occurrence: US)
  Receive Date: 20140124
  Receipt Date: 20140206
  Transmission Date: 20141002
  Serious: Yes (Death)
  Sender: FDA-Public Use
  Company Number: US-LUNDBECK-DKLU1096765

PATIENT
  Age: 8 Month
  Sex: Female
  Weight: 6 kg

DRUGS (18)
  1. SABRIL (FOR ORAL SOLUTION) [Suspect]
     Indication: INFANTILE SPASMS
     Route: 048
     Dates: start: 201309
  2. SABRIL (FOR ORAL SOLUTION) [Suspect]
     Route: 048
  3. LEVETIRACETAM [Concomitant]
     Indication: CONVULSION
     Route: 048
  4. LEVETIRACETAM [Concomitant]
  5. PHENOBARBITAL [Concomitant]
     Indication: CONVULSION
     Route: 048
  6. PHENOBARBITAL [Concomitant]
     Route: 048
  7. CLONAZEPAM [Concomitant]
     Indication: SEIZURE CLUSTER
  8. VITAMIN D [Concomitant]
     Indication: PRODUCT USED FOR UNKNOWN INDICATION
     Dosage: 500 UNITS
     Route: 048
  9. CYTRA K [Concomitant]
     Indication: PRODUCT USED FOR UNKNOWN INDICATION
  10. CYTRA K [Concomitant]
  11. LEVOTHYROXINE [Concomitant]
     Indication: PRODUCT USED FOR UNKNOWN INDICATION
     Route: 048
  12. ROBINUL [Concomitant]
     Indication: PRODUCT USED FOR UNKNOWN INDICATION
  13. ACETAMINOPHEN [Concomitant]
     Indication: PAIN
  14. ACETAMINOPHEN [Concomitant]
     Indication: PYREXIA
  15. NYSTATIN [Concomitant]
     Indication: PRODUCT USED FOR UNKNOWN INDICATION
  16. HYDROCORTISONE [Concomitant]
     Indication: PRODUCT USED FOR UNKNOWN INDICATION
  17. PYRIDOXINE HCL [Concomitant]
     Indication: PRODUCT USED FOR UNKNOWN INDICATION
     Route: 048
  18. VITAMIN D3 [Concomitant]
     Indication: PRODUCT USED FOR UNKNOWN INDICATION
     Route: 048

REACTIONS (1)
  - Death [Fatal]
